FAERS Safety Report 4754253-0 (Version None)
Quarter: 2005Q3

REPORT INFORMATION
  Report Type: 
  Country: None (occurrence: None)
  Receive Date: 20050829
  Receipt Date: 20050815
  Transmission Date: 20060218
  Serious: Yes (Disabling, Other)
  Sender: FDA-Public Use
  Company Number: US-JNJFOC-20050804458

PATIENT
  Sex: Female
  Weight: 81.65 kg

DRUGS (4)
  1. DURAGESIC-100 [Suspect]
     Dosage: HAS BEEN ON INCREASING DOES OVER TIME
     Route: 062
  2. POTASSIUM CHLORIDE [Concomitant]
     Dosage: 10 MEQ/L, 1 IN 24 HOURS
     Route: 048
  3. PROVIGIL [Concomitant]
     Indication: NARCOLEPSY
     Dosage: 2-3 TIMES/DAY
     Route: 048
  4. LAMICTAL [Concomitant]
     Indication: BIPOLAR DISORDER
     Route: 048

REACTIONS (4)
  - BIPOLAR DISORDER [None]
  - CEREBROVASCULAR ACCIDENT [None]
  - HYPERHIDROSIS [None]
  - WEIGHT DECREASED [None]
